FAERS Safety Report 18766908 (Version 1)
Quarter: 2021Q1

REPORT INFORMATION
  Report Type: Spontaneous
  Country: US (occurrence: US)
  Receive Date: 20210120
  Receipt Date: 20210120
  Transmission Date: 20210419
  Serious: No
  Sender: FDA-Public Use
  Company Number: None

PATIENT
  Age: 61 Year
  Sex: Female
  Weight: 46.7 kg

DRUGS (2)
  1. INJECTAFER [Suspect]
     Active Substance: FERRIC CARBOXYMALTOSE
     Indication: COLITIS ULCERATIVE
     Dosage: ?          OTHER FREQUENCY:IV INFUSION;?
     Route: 048
     Dates: start: 20210114, end: 20210114
  2. DIPHENHYDRAMINE 12.5 MG [Concomitant]
     Dates: start: 20210114, end: 20210114

REACTIONS (3)
  - Dyspnoea [None]
  - Infusion related reaction [None]
  - Cough [None]

NARRATIVE: CASE EVENT DATE: 20210114
